FAERS Safety Report 7251598-X (Version None)
Quarter: 2011Q1

REPORT INFORMATION
  Report Type: 
  Country: None (occurrence: None)
  Receive Date: 20110128
  Receipt Date: 20110125
  Transmission Date: 20110831
  Serious: Yes (Other)
  Sender: FDA-Public Use
  Company Number: US-PFIZER INC-2011018038

PATIENT
  Sex: Female
  Weight: 65 kg

DRUGS (17)
  1. ZOSYN [Concomitant]
     Dosage: UNK
  2. ZOFRAN [Concomitant]
     Dosage: UNK
  3. RIFAXIMIN [Concomitant]
     Dosage: UNK
  4. DIFLUCAN [Suspect]
     Indication: CANDIDIASIS
     Dosage: 200 MG, DAILY
     Dates: start: 20110115
  5. INSULIN [Concomitant]
     Dosage: UNK
  6. LASIX [Concomitant]
     Dosage: UNK
  7. ALDACTONE [Concomitant]
     Dosage: UNK
  8. LORAZEPAM [Concomitant]
     Dosage: UNK
  9. PERCOCET [Concomitant]
     Dosage: UNK
  10. FENTANYL [Concomitant]
     Dosage: UNK
  11. PRILOSEC [Concomitant]
     Dosage: UNK
  12. VANCOMYCIN [Concomitant]
     Dosage: UNK
  13. DOPAMINE [Concomitant]
     Dosage: UNK
  14. LACTULOSE [Concomitant]
     Dosage: UNK
  15. TYLENOL-500 [Concomitant]
     Dosage: UNK
  16. PHENYLPROPANOLAMINE [Concomitant]
     Dosage: UNK
  17. PROTONIX [Concomitant]
     Dosage: UNK

REACTIONS (3)
  - BLOOD UREA INCREASED [None]
  - CANDIDA TEST POSITIVE [None]
  - CARBON DIOXIDE DECREASED [None]
